FAERS Safety Report 4601856-X (Version None)
Quarter: 2005Q1

REPORT INFORMATION
  Report Type: 
  Country: None (occurrence: None)
  Receive Date: 20050131
  Receipt Date: 20041221
  Transmission Date: 20050727
  Serious: No
  Sender: FDA-Public Use
  Company Number: 200419436US

PATIENT
  Age: 43 Year
  Sex: Male

DRUGS (2)
  1. KETEK [Suspect]
     Indication: EAR INFECTION
  2. WARFARIN SODIUM [Concomitant]

REACTIONS (1)
  - CONTUSION [None]
